FAERS Safety Report 4691112-6 (Version None)
Quarter: 2005Q2

REPORT INFORMATION
  Report Type: 
  Country: None (occurrence: None)
  Receive Date: 20050615
  Receipt Date: 20050607
  Transmission Date: 20051028
  Serious: Yes (Hospitalization, Other)
  Sender: FDA-Public Use
  Company Number: 2005082623

PATIENT
  Age: 56 Year
  Sex: Female

DRUGS (7)
  1. LIPITOR [Suspect]
     Indication: HYPERLIPIDAEMIA
     Dosage: 5 MG (5 MG, 1 IN 1 D), ORAL
     Route: 048
     Dates: start: 20030101, end: 20050422
  2. LEVOFLOXACIN [Suspect]
     Indication: NASOPHARYNGITIS
     Dosage: 300 MG , ORAL
     Route: 048
     Dates: start: 20050425, end: 20050426
  3. TRANSAMIN (TRANEXAMIC ACID) [Concomitant]
  4. ALL OTHER THERAPEUTIC  PRODUCTS (ALL OTHER THERAPEUTIC PRODUCTS) [Concomitant]
  5. SALICYLAMIDE (SALICYLAMIDE) [Concomitant]
  6. ACETAMINOPHEN [Concomitant]
  7. CAFFEINE  (CAFFEINE) [Concomitant]

REACTIONS (13)
  - DIALYSIS [None]
  - DISSEMINATED INTRAVASCULAR COAGULATION [None]
  - DRUG ERUPTION [None]
  - ERYTHEMA [None]
  - MOUTH HAEMORRHAGE [None]
  - NASOPHARYNGITIS [None]
  - ORAL PAIN [None]
  - PANCYTOPENIA [None]
  - PLATELET COUNT DECREASED [None]
  - PYREXIA [None]
  - RASH [None]
  - RENAL FAILURE ACUTE [None]
  - RHABDOMYOLYSIS [None]
